APPROVED DRUG PRODUCT: THEOPHYLLINE
Active Ingredient: THEOPHYLLINE
Strength: 300MG
Dosage Form/Route: TABLET, EXTENDED RELEASE;ORAL
Application: A087400 | Product #002 | TE Code: AB
Applicant: NOSTRUM PHARMACEUTICALS LLC
Approved: Jan 11, 1983 | RLD: No | RS: No | Type: RX